FAERS Safety Report 7712299-4 (Version None)
Quarter: 2011Q3

REPORT INFORMATION
  Report Type: 
  Country: None (occurrence: None)
  Receive Date: 20110826
  Receipt Date: 20110817
  Transmission Date: 20111222
  Serious: Yes (Hospitalization)
  Sender: FDA-Public Use
  Company Number: FR-KINGPHARMUSA00001-K201100967

PATIENT
  Sex: Female

DRUGS (7)
  1. BISOPROLOL FUMARATE [Concomitant]
  2. ASPIRIN [Concomitant]
  3. ESOMEPRAZOLE MAGNESIUM [Suspect]
     Indication: GASTROOESOPHAGEAL REFLUX DISEASE
     Route: 048
  4. CITALOPRAM HYDROBROMIDE [Suspect]
     Indication: AFFECTIVE DISORDER
     Dosage: 20 MG, UNK
     Route: 048
     Dates: start: 20110712, end: 20110715
  5. LASIX [Suspect]
     Indication: HYPERTENSION
     Route: 048
  6. AMIODARONE HCL [Concomitant]
  7. ALTACE [Suspect]
     Indication: HYPERTENSION
     Dosage: UNK
     Route: 048

REACTIONS (8)
  - RENAL FAILURE [None]
  - LYMPHADENOPATHY [None]
  - HYPONATRAEMIA [None]
  - DECREASED APPETITE [None]
  - AFFECTIVE DISORDER [None]
  - ABDOMINAL DISTENSION [None]
  - DYSPEPSIA [None]
  - NAUSEA [None]
